FAERS Safety Report 8831645 (Version 1)
Quarter: 2012Q4

REPORT INFORMATION
  Report Type: 
  Country: MX (occurrence: MX)
  Receive Date: 20121009
  Receipt Date: 20121009
  Transmission Date: 20130627
  Serious: Yes (Other)
  Sender: FDA-Public Use
  Company Number: PHHY2012MX086932

PATIENT
  Sex: Male

DRUGS (1)
  1. STALEVO [Suspect]
     Indication: PARKINSON^S DISEASE
     Dosage: 200mg /150 mg /37.5mg, UNK
     Dates: start: 200811

REACTIONS (1)
  - Lower limb fracture [Not Recovered/Not Resolved]
